FAERS Safety Report 8368534-5 (Version None)
Quarter: 2012Q2

REPORT INFORMATION
  Report Type: 
  Country: None (occurrence: None)
  Receive Date: 20120518
  Receipt Date: 20120508
  Transmission Date: 20120825
  Serious: Yes (Hospitalization, Other)
  Sender: FDA-Public Use
  Company Number: US-BIOGENIDEC-2012BI015993

PATIENT
  Age: 57 Year
  Sex: Female

DRUGS (1)
  1. AVONEX [Suspect]
     Indication: MULTIPLE SCLEROSIS
     Route: 030

REACTIONS (14)
  - OXYGEN SATURATION DECREASED [None]
  - ANKLE FRACTURE [None]
  - HEART RATE DECREASED [None]
  - IRRITABILITY [None]
  - NERVOUSNESS [None]
  - STRESS [None]
  - TREMOR [None]
  - DELAYED RECOVERY FROM ANAESTHESIA [None]
  - FEAR [None]
  - HYPERAESTHESIA [None]
  - DEPRESSION [None]
  - PROCEDURAL COMPLICATION [None]
  - BLOOD PRESSURE DECREASED [None]
  - VITAL FUNCTIONS ABNORMAL [None]
